FAERS Safety Report 6829422-6 (Version None)
Quarter: 2010Q3

REPORT INFORMATION
  Report Type: 
  Country: None (occurrence: None)
  Receive Date: 20100709
  Receipt Date: 20070311
  Transmission Date: 20110219
  Serious: Yes (Other)
  Sender: FDA-Public Use
  Company Number: US-PFIZER INC-2007019638

PATIENT
  Sex: Male
  Weight: 129.3 kg

DRUGS (4)
  1. CHANTIX [Suspect]
     Indication: SMOKING CESSATION THERAPY
     Dates: start: 20070128, end: 20070310
  2. LIPITOR [Suspect]
     Indication: BLOOD CHOLESTEROL
     Dates: start: 20070101
  3. BYETTA [Concomitant]
     Indication: DIABETES MELLITUS
  4. AVANDIA [Concomitant]
     Indication: DIABETES MELLITUS

REACTIONS (2)
  - DIZZINESS [None]
  - HYPOTENSION [None]
